FAERS Safety Report 5262694-0 (Version None)
Quarter: 2007Q1

REPORT INFORMATION
  Report Type: 
  Country: None (occurrence: None)
  Receive Date: 20070312
  Receipt Date: 20070306
  Transmission Date: 20070707
  Serious: Yes (Death)
  Sender: FDA-Public Use
  Company Number: US-MERCK-0604USA02440

PATIENT
  Age: 84 Year
  Sex: Female

DRUGS (1)
  1. FOSAMAX [Suspect]
     Indication: OSTEOPOROSIS
     Route: 048
     Dates: start: 19990101

REACTIONS (5)
  - DEATH [None]
  - GINGIVAL RECESSION [None]
  - HODGKIN'S DISEASE [None]
  - IMPAIRED HEALING [None]
  - TRISMUS [None]
